FAERS Safety Report 7158271-7 (Version None)
Quarter: 2010Q4

REPORT INFORMATION
  Report Type: 
  Country: None (occurrence: None)
  Receive Date: 20101214
  Receipt Date: 20100405
  Transmission Date: 20110411
  Serious: No
  Sender: FDA-Public Use
  Company Number: US-ASTRAZENECA-2010SE14799

PATIENT
  Age: 21984 Day
  Sex: Male
  Weight: 88 kg

DRUGS (4)
  1. CRESTOR [Suspect]
     Indication: BLOOD CHOLESTEROL INCREASED
     Route: 048
     Dates: start: 20100305
  2. AMBIEN [Concomitant]
  3. COENZYME Q10 [Concomitant]
  4. ACYCLOVIR SODIUM [Concomitant]

REACTIONS (1)
  - CHILLS [None]
